FAERS Safety Report 4456615-8 (Version None)
Quarter: 2004Q3

REPORT INFORMATION
  Report Type: 
  Country: None (occurrence: None)
  Receive Date: 20040921
  Receipt Date: 20040908
  Transmission Date: 20050211
  Serious: Yes (Death)
  Sender: FDA-Public Use
  Company Number: 2004063936

PATIENT
  Age: 32 Year
  Sex: Male

DRUGS (1)
  1. DOXEPIN (CAPS) (DOXEPIN) [Suspect]
     Indication: ILL-DEFINED DISORDER
     Dosage: ORAL
     Route: 048

REACTIONS (1)
  - OVERDOSE [None]
